FAERS Safety Report 7113112-9 (Version None)
Quarter: 2010Q4

REPORT INFORMATION
  Report Type: 
  Country: None (occurrence: None)
  Receive Date: 20101119
  Receipt Date: 20101110
  Transmission Date: 20110411
  Serious: Yes (Hospitalization)
  Sender: FDA-Public Use
  Company Number: DE-ASTRAZENECA-2010SE53993

PATIENT
  Age: 27390 Day
  Sex: Female
  Weight: 58 kg

DRUGS (5)
  1. ATACAND [Suspect]
     Indication: HYPERTENSION
     Route: 048
     Dates: start: 20090227
  2. FLUVASTATIN SODIUM [Suspect]
     Indication: HYPERCHOLESTEROLAEMIA
     Route: 048
     Dates: start: 20091112
  3. LISINOPRIL AND HYDROCHLOROTHIAZIDE [Concomitant]
     Dates: start: 20060527
  4. NITRAZEPAM [Concomitant]
     Dates: start: 20100420
  5. CALCIUM CHANNEL BLOCKERS [Concomitant]
     Dates: start: 20100303

REACTIONS (1)
  - HYPERTENSION [None]
